FAERS Safety Report 16715644 (Version 1)
Quarter: 2019Q4

REPORT INFORMATION
  Report Type: Spontaneous
  Country: US (occurrence: US)
  Receive Date: 20190816
  Receipt Date: 20190816
  Transmission Date: 20200122
  Serious: Yes (Disabling)
  Sender: FDA-Public Use
  Company Number: None

PATIENT
  Age: 38 Year
  Sex: Female
  Weight: 101.25 kg

DRUGS (15)
  1. CAMBIA [Concomitant]
     Active Substance: DICLOFENAC POTASSIUM
  2. PERCOCET [Concomitant]
     Active Substance: ACETAMINOPHEN\OXYCODONE HYDROCHLORIDE
  3. ALEVE [Concomitant]
     Active Substance: NAPROXEN SODIUM
  4. AJOVY [Concomitant]
     Active Substance: FREMANEZUMAB-VFRM
  5. FIORICET [Concomitant]
     Active Substance: ACETAMINOPHEN\BUTALBITAL\CAFFEINE
  6. HYOSCYAMINE. [Concomitant]
     Active Substance: HYOSCYAMINE
  7. BENADRYL [Concomitant]
     Active Substance: DIPHENHYDRAMINE HYDROCHLORIDE
  8. TYLENOL [Concomitant]
     Active Substance: ACETAMINOPHEN
  9. ZOFRAN [Concomitant]
     Active Substance: ONDANSETRON HYDROCHLORIDE
  10. GAS-X [Concomitant]
     Active Substance: DIMETHICONE
  11. AJOVY [Suspect]
     Active Substance: FREMANEZUMAB-VFRM
     Indication: MIGRAINE
     Dosage: ?          QUANTITY:1 INJECTION(S);OTHER FREQUENCY:MONTHLY;?
     Route: 058
     Dates: start: 20190607, end: 20190805
  12. ZOLOFT [Concomitant]
     Active Substance: SERTRALINE HYDROCHLORIDE
  13. MAXALT [Concomitant]
     Active Substance: RIZATRIPTAN BENZOATE
  14. BENTYL [Concomitant]
     Active Substance: DICYCLOMINE HYDROCHLORIDE
  15. KLONOPIN [Concomitant]
     Active Substance: CLONAZEPAM

REACTIONS (5)
  - Panic attack [None]
  - Hot flush [None]
  - Abdominal discomfort [None]
  - Vomiting [None]
  - Pruritus [None]

NARRATIVE: CASE EVENT DATE: 20190806
